FAERS Safety Report 9968351 (Version 1)
Quarter: 2014Q1

REPORT INFORMATION
  Report Type: Report from Study
  Country: US (occurrence: US)
  Receive Date: 20140306
  Receipt Date: 20140306
  Transmission Date: 20141002
  Serious: No
  Sender: FDA-Public Use
  Company Number: US-ABBVIE-13P-163-1146701-00

PATIENT
  Age: 45 Year
  Sex: Female
  Weight: 65.83 kg

DRUGS (7)
  1. HUMIRA [Suspect]
     Indication: PSORIASIS
     Route: 058
     Dates: start: 201308
  2. LEVOTHYROXINE [Concomitant]
     Indication: THYROID DISORDER
  3. NEXIUM [Concomitant]
     Indication: GASTROOESOPHAGEAL REFLUX DISEASE
  4. ESCITALOPRAM [Concomitant]
     Indication: NERVOUSNESS
  5. ALPRAZOLAM [Concomitant]
     Indication: NERVOUSNESS
  6. CYCLOBENZAPRINE [Concomitant]
     Indication: MUSCLE RELAXANT THERAPY
  7. METFORMIN [Concomitant]
     Indication: INSULIN RESISTANCE
     Dates: start: 2013

REACTIONS (3)
  - Drug administration error [Recovered/Resolved]
  - Incorrect dose administered [Recovered/Resolved]
  - Injection site pain [Recovered/Resolved]
